FAERS Safety Report 11239791 (Version 4)
Quarter: 2015Q3

REPORT INFORMATION
  Report Type: Spontaneous
  Country: GB (occurrence: GB)
  Receive Date: 20150706
  Receipt Date: 20150908
  Transmission Date: 20151125
  Serious: Yes (Death, Other)
  Sender: FDA-Public Use
  Company Number: PHFR2015GB005076

PATIENT
  Age: 85 Year
  Sex: Male

DRUGS (6)
  1. ASPIRIN. [Concomitant]
     Active Substance: ASPIRIN
     Indication: HYPERTENSION
     Dosage: 75 MG, QD
     Route: 065
     Dates: start: 200803
  2. CITALOPRAM [Concomitant]
     Active Substance: CITALOPRAM HYDROBROMIDE
     Indication: SCHIZOPHRENIA, PARANOID TYPE
     Dosage: 10 MG, QD
     Route: 065
     Dates: start: 201411
  3. CLOZARIL [Suspect]
     Active Substance: CLOZAPINE
     Indication: PSYCHOTIC DISORDER
     Dosage: 25 MG, BID
     Route: 048
     Dates: start: 20120118
  4. CLOZARIL [Suspect]
     Active Substance: CLOZAPINE
     Indication: SCHIZOPHRENIA
     Dosage: 25 MG, BID
     Route: 048
     Dates: start: 20070723
  5. FUROSEMIDE. [Concomitant]
     Active Substance: FUROSEMIDE
     Indication: OEDEMA PERIPHERAL
     Dosage: 80 MG, QD
     Route: 065
     Dates: start: 200810
  6. CLOZARIL [Suspect]
     Active Substance: CLOZAPINE
     Indication: SCHIZOPHRENIA, PARANOID TYPE

REACTIONS (4)
  - Schizophrenia, paranoid type [Fatal]
  - General physical health deterioration [Not Recovered/Not Resolved]
  - Malaise [Unknown]
  - Cerebrovascular accident [Recovered/Resolved]

NARRATIVE: CASE EVENT DATE: 20150625
